FAERS Safety Report 8437513-1 (Version None)
Quarter: 2012Q2

REPORT INFORMATION
  Report Type: 
  Country: None (occurrence: None)
  Receive Date: 20120614
  Receipt Date: 20120415
  Transmission Date: 20120825
  Serious: No
  Sender: FDA-Public Use
  Company Number: US-AMGEN-USASP2012023849

PATIENT
  Age: 72 Year
  Sex: Female

DRUGS (2)
  1. PROLIA [Suspect]
     Indication: OSTEOPOROSIS POSTMENOPAUSAL
     Dosage: 60 MG, Q6MO
  2. VITAMIN D [Concomitant]
     Dosage: 50000 IU, UNK
     Dates: start: 20120328

REACTIONS (4)
  - PYREXIA [None]
  - DIARRHOEA [None]
  - ABDOMINAL PAIN [None]
  - URTICARIA [None]
